FAERS Safety Report 4577700-6 (Version None)
Quarter: 2005Q1

REPORT INFORMATION
  Report Type: 
  Country: None (occurrence: None)
  Receive Date: 20050127
  Receipt Date: 20040825
  Transmission Date: 20050727
  Serious: No
  Sender: FDA-Public Use
  Company Number: USA040876510

PATIENT
  Age: 19 Year
  Sex: Female
  Weight: 61 kg

DRUGS (2)
  1. STRATTERA [Suspect]
     Indication: ATTENTION DEFICIT/HYPERACTIVITY DISORDER
     Dates: start: 20040818
  2. ALESSE [Concomitant]

REACTIONS (3)
  - COGNITIVE DISORDER [None]
  - CRYING [None]
  - DRUG INEFFECTIVE [None]
